FAERS Safety Report 5643527-7 (Version None)
Quarter: 2008Q1

REPORT INFORMATION
  Report Type: 
  Country: None (occurrence: None)
  Receive Date: 20080228
  Receipt Date: 20080221
  Transmission Date: 20080703
  Serious: Yes (Hospitalization, Disabling, Other)
  Sender: FDA-Public Use
  Company Number: JP-BOEHRINGER INGELHEIM GMBH, GERMANY-2008-BP-01792NB

PATIENT
  Sex: Female
  Weight: 47.5 kg

DRUGS (6)
  1. MICARDIS [Suspect]
     Indication: HYPERTENSION
     Route: 048
     Dates: start: 20080117, end: 20080125
  2. AMLODIN [Concomitant]
     Route: 048
  3. ALOSEN (SENNA LEAF_SENNA POD) [Concomitant]
     Route: 048
  4. FAMOTIDINE [Concomitant]
     Route: 048
  5. FRANDOL [Concomitant]
     Route: 062
  6. LASIX [Concomitant]
     Route: 048

REACTIONS (1)
  - ADVERSE EVENT [None]
